FAERS Safety Report 15585787 (Version 3)
Quarter: 2019Q1

REPORT INFORMATION
  Report Type: Spontaneous
  Country: US (occurrence: US)
  Receive Date: 20181105
  Receipt Date: 20190109
  Transmission Date: 20190417
  Serious: Yes (Other)
  Sender: FDA-Public Use
  Company Number: US-HIKMA PHARMACEUTICALS USA INC.-US-H14001-18-08156

PATIENT
  Age: 49 Year
  Sex: Female
  Weight: 113.5 kg

DRUGS (1)
  1. RITONAVIR. [Suspect]
     Active Substance: RITONAVIR
     Indication: ANTIVIRAL TREATMENT
     Route: 048
     Dates: start: 20181014

REACTIONS (1)
  - Transmission of an infectious agent via product [Unknown]

NARRATIVE: CASE EVENT DATE: 20181014
